FAERS Safety Report 8280222-2 (Version None)
Quarter: 2012Q2

REPORT INFORMATION
  Report Type: 
  Country: None (occurrence: None)
  Receive Date: 20120412
  Receipt Date: 20110614
  Transmission Date: 20120825
  Serious: No
  Sender: FDA-Public Use
  Company Number: US-ASTRAZENECA-2011SE36318

PATIENT
  Sex: Male

DRUGS (2)
  1. PLAVIX [Concomitant]
  2. NEXIUM [Suspect]
     Route: 048
     Dates: end: 20110701

REACTIONS (3)
  - WEIGHT DECREASED [None]
  - MUSCLE ATROPHY [None]
  - ASTHENIA [None]
